FAERS Safety Report 20925376 (Version 1)
Quarter: 2022Q2

REPORT INFORMATION
  Report Type: Spontaneous
  Country: US (occurrence: US)
  Receive Date: 20220607
  Receipt Date: 20220607
  Transmission Date: 20220721
  Serious: No
  Sender: FDA-Public Use
  Company Number: US-KARYOPHARM-2022KPT000446

PATIENT

DRUGS (19)
  1. XPOVIO [Suspect]
     Active Substance: SELINEXOR
     Indication: Plasma cell myeloma
     Dosage: 100 MG, WEEKLY
     Route: 048
     Dates: start: 202104, end: 202204
  2. LIPITOR [Concomitant]
     Active Substance: ATORVASTATIN CALCIUM
  3. ANCEF [Concomitant]
     Active Substance: CEFAZOLIN SODIUM
  4. DEXAMETHASONE [Concomitant]
     Active Substance: DEXAMETHASONE
  5. NEURONTIN [Concomitant]
     Active Substance: GABAPENTIN
  6. LANTUS [Concomitant]
     Active Substance: INSULIN GLARGINE
  7. HUMALOG [Concomitant]
     Active Substance: INSULIN LISPRO
  8. ROBAXIN [Concomitant]
     Active Substance: METHOCARBAMOL
  9. REMERON [Concomitant]
     Active Substance: MIRTAZAPINE
  10. MS CONTIN [Concomitant]
     Active Substance: MORPHINE SULFATE
  11. ZOFRAN [Concomitant]
     Active Substance: ONDANSETRON HYDROCHLORIDE
  12. OXYCODONE HYDROCHLORIDE [Concomitant]
     Active Substance: OXYCODONE HYDROCHLORIDE
  13. ALDACTONE [Concomitant]
     Active Substance: SPIRONOLACTONE
  14. TRAMADOL HCL [Concomitant]
     Active Substance: TRAMADOL HYDROCHLORIDE
  15. ACYCLOVIR [Concomitant]
     Active Substance: ACYCLOVIR
  16. FOSAMAX [Concomitant]
     Active Substance: ALENDRONATE SODIUM
  17. AUGMENTIN [Concomitant]
     Active Substance: AMOXICILLIN\CLAVULANATE POTASSIUM
  18. ZOCOR [Concomitant]
     Active Substance: SIMVASTATIN
  19. MORPHINE [Concomitant]
     Active Substance: MORPHINE

REACTIONS (2)
  - Drug ineffective [Unknown]
  - Hospitalisation [Unknown]

NARRATIVE: CASE EVENT DATE: 20220401
